FAERS Safety Report 7437965-X (Version None)
Quarter: 2011Q2

REPORT INFORMATION
  Report Type: 
  Country: None (occurrence: None)
  Receive Date: 20110419
  Receipt Date: 20110406
  Transmission Date: 20111010
  Serious: Yes (Other)
  Sender: FDA-Public Use
  Company Number: 030820

PATIENT
  Age: 73 Year
  Sex: Male

DRUGS (1)
  1. NEUPRO [Suspect]
     Indication: RESTLESS LEGS SYNDROME
     Dosage: 1 MG, QD, TRANSDERMAL
     Route: 062
     Dates: start: 20110314, end: 20110319

REACTIONS (6)
  - CONFUSIONAL STATE [None]
  - POOR QUALITY SLEEP [None]
  - HALLUCINATION [None]
  - ABNORMAL DREAMS [None]
  - COGNITIVE DISORDER [None]
  - THINKING ABNORMAL [None]
